FAERS Safety Report 5476035-7 (Version None)
Quarter: 2007Q3

REPORT INFORMATION
  Report Type: 
  Country: None (occurrence: None)
  Receive Date: 20070904
  Receipt Date: 20070628
  Transmission Date: 20080115
  Serious: No
  Sender: FDA-Public Use
  Company Number: PHEH2007US09440

PATIENT
  Age: 56 Year
  Sex: Female

DRUGS (2)
  1. ENABLEX [Suspect]
     Indication: URINARY INCONTINENCE
     Dates: start: 20070501
  2. SEROQUEL [Suspect]
     Indication: DEPRESSION
     Dosage: 400 MG
     Dates: start: 20070301

REACTIONS (2)
  - DRUG INEFFECTIVE [None]
  - WEIGHT INCREASED [None]
